FAERS Safety Report 15953904 (Version 1)
Quarter: 2019Q1

REPORT INFORMATION
  Report Type: Spontaneous
  Country: US (occurrence: US)
  Receive Date: 20190212
  Receipt Date: 20190212
  Transmission Date: 20190417
  Serious: Yes (Hospitalization)
  Sender: FDA-Public Use
  Company Number: PHHY2019US031088

PATIENT
  Age: 89 Year
  Sex: Female

DRUGS (6)
  1. MEMANTINE. [Suspect]
     Active Substance: MEMANTINE
     Indication: DEPRESSION
  2. DONEPEZIL. [Suspect]
     Active Substance: DONEPEZIL
     Indication: DEPRESSION
  3. MEMANTINE. [Suspect]
     Active Substance: MEMANTINE
     Indication: DEMENTIA
     Route: 065
  4. QUETIAPINE. [Suspect]
     Active Substance: QUETIAPINE
     Indication: DEPRESSION
  5. DONEPEZIL. [Suspect]
     Active Substance: DONEPEZIL
     Indication: DEMENTIA
     Route: 065
  6. QUETIAPINE. [Suspect]
     Active Substance: QUETIAPINE
     Indication: DEMENTIA
     Route: 065

REACTIONS (7)
  - Fluid overload [Recovered/Resolved]
  - Urinary incontinence [Recovered/Resolved]
  - Dyspnoea [Unknown]
  - Product use in unapproved indication [Unknown]
  - Suprapubic pain [Recovered/Resolved]
  - Orthopnoea [Unknown]
  - Urinary retention [Recovered/Resolved]
